FAERS Safety Report 5016570-9 (Version None)
Quarter: 2006Q2

REPORT INFORMATION
  Report Type: 
  Country: None (occurrence: None)
  Receive Date: 20060602
  Receipt Date: 20060523
  Transmission Date: 20061013
  Serious: Yes (Life-Threatening, Hospitalization)
  Sender: FDA-Public Use
  Company Number: PL-BRISTOL-MYERS SQUIBB COMPANY-13387865

PATIENT
  Age: 2 Year
  Sex: Male

DRUGS (3)
  1. AMIKACIN [Suspect]
  2. CLARITHROMYCIN [Concomitant]
  3. CLINDAMYCIN [Concomitant]

REACTIONS (6)
  - DYSPNOEA [None]
  - HEPATOMEGALY [None]
  - MUSCULOSKELETAL STIFFNESS [None]
  - PNEUMONIA [None]
  - RESPIRATORY FAILURE [None]
  - SPLENOMEGALY [None]
